FAERS Safety Report 20226588 (Version 1)
Quarter: 2021Q4

REPORT INFORMATION
  Report Type: Spontaneous
  Country: HK (occurrence: HK)
  Receive Date: 20211224
  Receipt Date: 20211224
  Transmission Date: 20220303
  Serious: Yes (Hospitalization, Other)
  Sender: FDA-Public Use
  Company Number: HK-MLMSERVICE-20211208-3263295-1

PATIENT
  Age: 51 Year
  Sex: Male

DRUGS (5)
  1. PREDNISOLONE [Suspect]
     Active Substance: PREDNISOLONE
     Indication: Renal transplant
     Dosage: 6 MILLIGRAM, DAILY
     Route: 048
  2. TACROLIMUS [Suspect]
     Active Substance: TACROLIMUS
     Indication: Renal transplant
     Dosage: 1.5 MILLIGRAM PER DAY (PROLONGED RELEASE 1.5 MG DAILY)
     Route: 065
  3. AMPHOTERICIN B [Suspect]
     Active Substance: AMPHOTERICIN B
     Indication: Pulmonary mucormycosis
     Dosage: 5 MILLIGRAM/KILOGRAM PER DAY
     Route: 042
     Dates: start: 201203
  4. AMPHOTERICIN B [Suspect]
     Active Substance: AMPHOTERICIN B
     Indication: Disease recurrence
     Dosage: 5 MILLIGRAM/KILOGRAM PER DAY
     Route: 042
     Dates: start: 202009
  5. POSACONAZOLE [Suspect]
     Active Substance: POSACONAZOLE
     Indication: Pulmonary mucormycosis
     Dosage: 300 MILLIGRAM, BID
     Route: 048
     Dates: start: 2012

REACTIONS (8)
  - Spontaneous haemorrhage [Recovered/Resolved]
  - Pulmonary mucormycosis [Recovered/Resolved]
  - Staphylococcal sepsis [Unknown]
  - Staphylococcal infection [Unknown]
  - Bacterial sepsis [Unknown]
  - Bacterial infection [Unknown]
  - Infection [Recovered/Resolved]
  - Disease recurrence [Recovered/Resolved]

NARRATIVE: CASE EVENT DATE: 20120301
